FAERS Safety Report 13449971 (Version 1)
Quarter: 2017Q2

REPORT INFORMATION
  Report Type: Spontaneous
  Country: US (occurrence: US)
  Receive Date: 20170417
  Receipt Date: 20170417
  Transmission Date: 20170830
  Serious: No
  Sender: FDA-Public Use
  Company Number: US-BION-20160406

PATIENT
  Age: 81 Year
  Sex: Female
  Weight: 49.9 kg

DRUGS (2)
  1. ALEVE [Suspect]
     Active Substance: NAPROXEN SODIUM
     Indication: BACK PAIN
     Dosage: 1 DF AS NEEDED
     Route: 048
  2. METOPROLOL ER (GENERIC) [Concomitant]

REACTIONS (1)
  - Erythema [Not Recovered/Not Resolved]
